FAERS Safety Report 8890739 (Version 1)
Quarter: 2012Q4

REPORT INFORMATION
  Report Type: 
  Country: US (occurrence: US)
  Receive Date: 20121106
  Receipt Date: 20121106
  Transmission Date: 20130627
  Serious: No
  Sender: FDA-Public Use
  Company Number: US-009507513-1211USA000731

PATIENT
  Sex: Female

DRUGS (3)
  1. FOSAMAX [Suspect]
     Dosage: UNK, qw
     Route: 048
     Dates: start: 2011, end: 20121020
  2. LOSARTAN POTASSIUM [Concomitant]
  3. AMLODIPINE [Concomitant]

REACTIONS (2)
  - Arthralgia [Unknown]
  - Insomnia [Unknown]
